FAERS Safety Report 4773786-4 (Version None)
Quarter: 2005Q3

REPORT INFORMATION
  Report Type: 
  Country: None (occurrence: None)
  Receive Date: 20050920
  Receipt Date: 20050915
  Transmission Date: 20060218
  Serious: Yes (Hospitalization)
  Sender: FDA-Public Use
  Company Number: US-MERCK-0509USA02062

PATIENT
  Age: 48 Year
  Sex: Female

DRUGS (8)
  1. VIOXX [Suspect]
     Indication: ARTHRALGIA
     Route: 048
     Dates: start: 20030101, end: 20040101
  2. TOPROL-XL [Concomitant]
     Route: 048
  3. LIPITOR [Concomitant]
     Route: 065
  4. LEXAPRO [Concomitant]
     Route: 065
  5. ESTROGENS (UNSPECIFIED) [Concomitant]
     Route: 048
  6. SONATA [Concomitant]
     Route: 065
  7. ULTRACET [Concomitant]
     Route: 065
  8. ATACAND [Concomitant]
     Route: 065

REACTIONS (1)
  - ARTERIAL OCCLUSIVE DISEASE [None]
